FAERS Safety Report 5637342-8 (Version None)
Quarter: 2008Q1

REPORT INFORMATION
  Report Type: 
  Country: None (occurrence: None)
  Receive Date: 20080219
  Receipt Date: 20080208
  Transmission Date: 20080703
  Serious: Yes (Other)
  Sender: FDA-Public Use
  Company Number: 163-20785-08020550

PATIENT
  Age: 64 Year
  Sex: Male

DRUGS (1)
  1. THALOMID [Suspect]
     Indication: MULTIPLE MYELOMA
     Dosage: 400 MG, 2 IN 1 D, ORAL
     Route: 048
     Dates: start: 20070625, end: 20070601

REACTIONS (1)
  - HALLUCINATION, VISUAL [None]
